FAERS Safety Report 5088989-1 (Version None)
Quarter: 2006Q3

REPORT INFORMATION
  Report Type: 
  Country: None (occurrence: None)
  Receive Date: 20060825
  Receipt Date: 20060816
  Transmission Date: 20061208
  Serious: Yes (Death, Other)
  Sender: FDA-Public Use
  Company Number: PHBS2006PT12319

PATIENT
  Age: 68 Year
  Sex: Male

DRUGS (12)
  1. NICORANDIL [Concomitant]
     Route: 048
     Dates: end: 20060405
  2. CLOPIDOGREL [Concomitant]
     Route: 048
     Dates: end: 20060405
  3. DILTIAZEM HYDROCHLORIDE [Concomitant]
     Dosage: 180 MG/D
     Route: 048
     Dates: end: 20060405
  4. TIOTROPIUM BROMIDE [Concomitant]
     Dosage: 0.0225 MG/D
     Dates: end: 20060405
  5. CARBAMAZEPINE [Concomitant]
     Dosage: 1 DF, QD
     Route: 048
     Dates: start: 20050201, end: 20050501
  6. GABAPENTIN [Concomitant]
     Dosage: 1 DF, QD
     Route: 048
     Dates: start: 20050201, end: 20050501
  7. SUCRALFATE [Concomitant]
     Dosage: 3 G/D
     Route: 048
     Dates: end: 20060405
  8. ZOMETA [Suspect]
     Indication: MULTIPLE MYELOMA
     Dosage: 4 MG, QMO
  9. COLECALCIFEROL [Concomitant]
     Route: 048
     Dates: end: 20060405
  10. CALCIUM CARBONATE [Concomitant]
     Route: 048
     Dates: end: 20060405
  11. THEOPHYLLINE [Concomitant]
     Dosage: 250 MG/D
     Route: 048
     Dates: end: 20060405
  12. BUDESONIDE [Concomitant]
     Dates: end: 20060405

REACTIONS (6)
  - DEATH [None]
  - GENERAL PHYSICAL HEALTH DETERIORATION [None]
  - OSTEOMYELITIS [None]
  - OSTEONECROSIS [None]
  - PSYCHOTIC DISORDER [None]
  - WOUND TREATMENT [None]
